FAERS Safety Report 5362278-X (Version None)
Quarter: 2007Q2

REPORT INFORMATION
  Report Type: 
  Country: None (occurrence: None)
  Receive Date: 20070619
  Receipt Date: 20070615
  Transmission Date: 20071010
  Serious: Yes (Other)
  Sender: FDA-Public Use
  Company Number: A0638223A

PATIENT
  Sex: Male

DRUGS (4)
  1. PAXIL [Suspect]
     Indication: DEPRESSION
     Dosage: 20MG UNKNOWN
     Route: 048
     Dates: start: 19990101
  2. WELLBUTRIN SR [Suspect]
     Dosage: 150MG UNKNOWN
     Route: 048
  3. ALCOHOL [Suspect]
  4. RISPERDAL [Concomitant]
     Indication: BIPOLAR DISORDER

REACTIONS (14)
  - ALTERED STATE OF CONSCIOUSNESS [None]
  - AMNESIA [None]
  - DRUG INEFFECTIVE [None]
  - DRUG WITHDRAWAL SYNDROME [None]
  - DYSPNOEA [None]
  - HOT FLUSH [None]
  - IRRITABILITY [None]
  - MALAISE [None]
  - MOOD SWINGS [None]
  - PARANOIA [None]
  - PHYSICAL ASSAULT [None]
  - POISONING [None]
  - RESTLESSNESS [None]
  - SMOKER [None]
